FAERS Safety Report 7625621-4 (Version None)
Quarter: 2011Q3

REPORT INFORMATION
  Report Type: 
  Country: None (occurrence: None)
  Receive Date: 20110721
  Receipt Date: 20110715
  Transmission Date: 20111222
  Serious: Yes (Other)
  Sender: FDA-Public Use
  Company Number: GB-TEVA-291095ISR

PATIENT
  Age: 61 Year
  Sex: Female

DRUGS (4)
  1. BISOPROLOL [Suspect]
     Dates: start: 20101001, end: 20101006
  2. RAMIPRIL [Suspect]
     Indication: BLOOD PRESSURE
     Dates: start: 20101206, end: 20101216
  3. RAMIPRIL [Suspect]
     Dates: start: 20101118
  4. DILTIAZEM [Suspect]
     Dates: start: 20101006

REACTIONS (2)
  - VISION BLURRED [None]
  - VISUAL IMPAIRMENT [None]
